FAERS Safety Report 8347987-2 (Version None)
Quarter: 2012Q2

REPORT INFORMATION
  Report Type: 
  Country: None (occurrence: None)
  Receive Date: 20120507
  Receipt Date: 20120425
  Transmission Date: 20120825
  Serious: Yes (Hospitalization)
  Sender: FDA-Public Use
  Company Number: 2012HGS-003563

PATIENT
  Age: 35 Year
  Sex: Female
  Weight: 82 kg

DRUGS (11)
  1. METHOTREXATE [Concomitant]
  2. L-THYROXIN (LEVOTHYROXINE SODIUM) (LEVOTHYROXINE SODIUM) [Concomitant]
  3. PANTOZOL (PANTOPRAZOLE SODIUM SESQUIHYDRATE) (PANTOPRAZOLE SODIUM SESQ [Concomitant]
  4. NOVALGIN (NOVO-PETRIN) (CAFFEINE, PARACETAMOL, PROPYPHENAZONE) [Concomitant]
  5. FE-SUBSTITUTION (IRON SUPPLEMENTS) [Concomitant]
  6. IBUPROFEN TABLETS [Concomitant]
  7. COLECALCIFEROL (COLECALCIFEROL) (COLECALCIFEROL) [Concomitant]
  8. PREDNISOLON (PREDNISOLONE) (PREDNISOLONE) [Concomitant]
  9. BENLYSTA [Suspect]
     Indication: SYSTEMIC LUPUS ERYTHEMATOSUS
     Dosage: 1 IN 1 M, INTRAVENOUS DRIP
     Route: 041
     Dates: start: 20111201, end: 20120201
  10. HYDROXYCHLOROQUINE SULFATE [Concomitant]
  11. FOLIC ACID [Concomitant]

REACTIONS (4)
  - SYSTEMIC LUPUS ERYTHEMATOSUS [None]
  - CONDITION AGGRAVATED [None]
  - LUPUS NEPHRITIS [None]
  - DRUG EFFECT DECREASED [None]
